FAERS Safety Report 7156819-X (Version None)
Quarter: 2010Q4

REPORT INFORMATION
  Report Type: 
  Country: None (occurrence: None)
  Receive Date: 20101214
  Receipt Date: 20101206
  Transmission Date: 20110411
  Serious: Yes (Hospitalization)
  Sender: FDA-Public Use
  Company Number: HR-TEVA-259371ISR

PATIENT
  Age: 48 Year
  Sex: Female

DRUGS (5)
  1. RANITIDINE [Suspect]
     Route: 048
  2. IBUPROFEN [Suspect]
     Route: 048
  3. AMOXICILLIN AND CLAVULANATE POTASSIUM [Concomitant]
  4. PARACETAMOL [Concomitant]
  5. CIPROFLOXACIN [Concomitant]

REACTIONS (2)
  - MENINGITIS ASEPTIC [None]
  - OTOTOXICITY [None]
